FAERS Safety Report 24071280 (Version 1)
Quarter: 2024Q3

REPORT INFORMATION
  Report Type: Report from Study
  Country: US (occurrence: US)
  Receive Date: 20240710
  Receipt Date: 20240710
  Transmission Date: 20241017
  Serious: No
  Sender: ROCHE
  Company Number: US-ROCHE-3530144

PATIENT
  Age: 3 Year
  Sex: Female
  Weight: 16.9 kg

DRUGS (4)
  1. EVRYSDI [Suspect]
     Active Substance: RISDIPLAM
     Indication: Spinal muscular atrophy
     Route: 048
  2. EVRYSDI [Suspect]
     Active Substance: RISDIPLAM
     Route: 048
     Dates: start: 20240315
  3. EVRYSDI [Suspect]
     Active Substance: RISDIPLAM
     Route: 048
     Dates: start: 20240220, end: 20240314
  4. EVRYSDI [Suspect]
     Active Substance: RISDIPLAM

REACTIONS (2)
  - Off label use [Unknown]
  - No adverse event [Unknown]
